FAERS Safety Report 18209238 (Version 1)
Quarter: 2020Q3

REPORT INFORMATION
  Report Type: Spontaneous
  Country: US (occurrence: US)
  Receive Date: 20200828
  Receipt Date: 20200828
  Transmission Date: 20201103
  Serious: No
  Sender: FDA-Public Use
  Company Number: US-ELI_LILLY_AND_COMPANY-US202008011490

PATIENT
  Sex: Male
  Weight: 29.9 kg

DRUGS (2)
  1. HUMATROPE [Suspect]
     Active Substance: SOMATROPIN
     Indication: SHORT STATURE
     Dosage: 1.4 MG, OTHER (SIX TIMES EVERY WEEK)
     Route: 065
     Dates: start: 20190907
  2. HUMATROPE [Suspect]
     Active Substance: SOMATROPIN
     Dosage: 1.4 MG, OTHER (SIX TIMES EVERY WEEK)
     Route: 065
     Dates: start: 20190907

REACTIONS (4)
  - Drug resistance [Unknown]
  - Depressed mood [Unknown]
  - Product dose omission issue [Unknown]
  - Incorrect dosage administered [Unknown]
